FAERS Safety Report 24084208 (Version 1)
Quarter: 2024Q3

REPORT INFORMATION
  Report Type: Spontaneous
  Country: IN (occurrence: IN)
  Receive Date: 20240712
  Receipt Date: 20240712
  Transmission Date: 20241017
  Serious: Yes (Hospitalization)
  Sender: INCYTE
  Company Number: IN-002147023-NVSC2024IN138961

PATIENT

DRUGS (1)
  1. RUXOLITINIB [Suspect]
     Active Substance: RUXOLITINIB
     Indication: Polycythaemia vera
     Dosage: 5 MG, BID
     Route: 048
     Dates: start: 20240312

REACTIONS (11)
  - Anaemia [Unknown]
  - Electrolyte imbalance [Unknown]
  - Fatigue [Unknown]
  - Asthenia [Unknown]
  - Blood glucose increased [Unknown]
  - Hyperkalaemia [Unknown]
  - Thrombocytosis [Unknown]
  - Chest discomfort [Unknown]
  - Dysuria [Unknown]
  - Blood creatinine increased [Unknown]
  - Decreased appetite [Unknown]
